FAERS Safety Report 8123149-9 (Version None)
Quarter: 2012Q1

REPORT INFORMATION
  Report Type: 
  Country: None (occurrence: None)
  Receive Date: 20120206
  Receipt Date: 20120124
  Transmission Date: 20120608
  Serious: Yes (Hospitalization, Disabling, Other)
  Sender: FDA-Public Use
  Company Number: 2012MA001086

PATIENT
  Sex: Male

DRUGS (6)
  1. ALDACTONE [Concomitant]
  2. COREG [Concomitant]
  3. DIGOXIN [Suspect]
     Indication: PRODUCT USED FOR UNKNOWN INDICATION
     Dosage: 250 MCG;QD; PO
     Route: 048
     Dates: start: 20060820, end: 20080131
  4. COUMADIN [Concomitant]
  5. VIPIRENEX [Concomitant]
  6. LISINOPRIL [Concomitant]

REACTIONS (23)
  - SUPRAVENTRICULAR TACHYCARDIA [None]
  - DYSARTHRIA [None]
  - GAIT DISTURBANCE [None]
  - LABILE HYPERTENSION [None]
  - LEFT VENTRICULAR HYPERTROPHY [None]
  - ISCHAEMIC STROKE [None]
  - PROTEINURIA [None]
  - BLOOD PRESSURE INCREASED [None]
  - HEMIANOPIA HOMONYMOUS [None]
  - EMBOLIC STROKE [None]
  - TACHYCARDIA [None]
  - PARAESTHESIA [None]
  - CARDIOMYOPATHY [None]
  - MENTAL STATUS CHANGES [None]
  - ATAXIA [None]
  - NEUROLOGICAL SYMPTOM [None]
  - HYPOTONIA [None]
  - CLUMSINESS [None]
  - VIITH NERVE PARALYSIS [None]
  - ATRIOVENTRICULAR BLOCK FIRST DEGREE [None]
  - PARALYSIS [None]
  - SPEECH DISORDER [None]
  - MONOPLEGIA [None]
